FAERS Safety Report 7063206-1 (Version None)
Quarter: 2010Q4

REPORT INFORMATION
  Report Type: 
  Country: None (occurrence: None)
  Receive Date: 20101026
  Receipt Date: 20100512
  Transmission Date: 20110411
  Serious: Yes (Other)
  Sender: FDA-Public Use
  Company Number: US-PFIZER INC-2010060646

PATIENT
  Sex: Male
  Weight: 81.633 kg

DRUGS (1)
  1. LIPITOR [Suspect]
     Indication: BLOOD CHOLESTEROL INCREASED
     Dosage: 10 MG
     Route: 048
     Dates: start: 20100401

REACTIONS (2)
  - BLOOD CREATINE PHOSPHOKINASE ABNORMAL [None]
  - MUSCLE SPASMS [None]
